FAERS Safety Report 12261755 (Version 2)
Quarter: 2016Q3

REPORT INFORMATION
  Report Type: Spontaneous
  Country: PT (occurrence: PT)
  Receive Date: 20160413
  Receipt Date: 20160706
  Transmission Date: 20161109
  Serious: Yes (Hospitalization, Other)
  Sender: FDA-Public Use
  Company Number: PT-VIIV HEALTHCARE LIMITED-PT2016045113

PATIENT
  Age: 63 Year
  Sex: Female
  Weight: 67.8 kg

DRUGS (7)
  1. TIVICAY [Suspect]
     Active Substance: DOLUTEGRAVIR SODIUM
     Indication: HIV INFECTION CDC CATEGORY A
     Dosage: 50 MG, QD
     Route: 048
     Dates: start: 20160216
  2. ENALAPRIL [Concomitant]
     Active Substance: ENALAPRIL
     Indication: HYPERTENSION
     Dosage: 20 MG, QD
     Route: 048
  3. MELPERONE [Concomitant]
     Active Substance: MELPERONE
     Indication: INTELLECTUAL DISABILITY
     Dosage: 25 MG, QD
     Route: 048
  4. NEVIRAPINA [Concomitant]
     Indication: HIV INFECTION CDC CATEGORY A
     Dosage: 1 DF, QD
     Route: 065
     Dates: end: 201602
  5. OMEPRAZOL [Concomitant]
     Active Substance: OMEPRAZOLE
     Indication: PROPHYLAXIS
     Dosage: 20 MG, QD
     Route: 048
  6. EMTRICITABINA + TENOFOVIR [Concomitant]
     Active Substance: EMTRICITABINE\TENOFOVIR
     Indication: HIV INFECTION CDC CATEGORY A
     Dosage: 1 DF, QD
     Route: 065
     Dates: end: 201602
  7. KIVEXA [Concomitant]
     Active Substance: ABACAVIR SULFATE\LAMIVUDINE
     Indication: HIV INFECTION CDC CATEGORY A
     Dosage: 1 DF, QD
     Route: 048
     Dates: start: 201602

REACTIONS (3)
  - Cerebrovascular accident [Recovered/Resolved]
  - Dysphonia [Recovered/Resolved]
  - Dysarthria [Recovered/Resolved]

NARRATIVE: CASE EVENT DATE: 20160319
